FAERS Safety Report 23633147 (Version 1)
Quarter: 2024Q1

REPORT INFORMATION
  Report Type: Report from Study
  Country: ES (occurrence: None)
  Receive Date: 20240314
  Receipt Date: 20240314
  Transmission Date: 20240409
  Serious: Yes (Hospitalization)
  Sender: FDA-Public Use
  Company Number: ES-SUPERNUS Pharmaceuticals, Inc.-SUP202403-000819

PATIENT
  Age: 60 Year
  Sex: Female

DRUGS (4)
  1. OXCARBAZEPINE [Suspect]
     Active Substance: OXCARBAZEPINE
     Indication: Epilepsy
  2. PHENYTOIN [Suspect]
     Active Substance: PHENYTOIN
     Indication: Epilepsy
  3. LEVETIRACETAM [Concomitant]
     Active Substance: LEVETIRACETAM
     Dosage: NOT PROVIDED
  4. RANITIDINE [Concomitant]
     Active Substance: RANITIDINE
     Dosage: NOT PROVIDED

REACTIONS (2)
  - Hepatocellular injury [Unknown]
  - Drug reaction with eosinophilia and systemic symptoms [Unknown]
